FAERS Safety Report 9142795 (Version 1)
Quarter: 2013Q1

REPORT INFORMATION
  Report Type: Spontaneous
  Country: US (occurrence: US)
  Receive Date: 20130306
  Receipt Date: 20130306
  Transmission Date: 20140127
  Serious: No
  Sender: FDA-Public Use
  Company Number: US-BAYER-2013-027631

PATIENT
  Sex: 0

DRUGS (3)
  1. ALEVE CAPLET/TABLET,MIDOL EXTENDED RELIEF CAPLET [Suspect]
     Indication: PAIN IN EXTREMITY
     Dosage: UNK UNK, BID
  2. ADVIL [Concomitant]
  3. SCLEROSING SHOTS [Concomitant]

REACTIONS (1)
  - Drug ineffective [None]
